FAERS Safety Report 7380264-5 (Version None)
Quarter: 2011Q1

REPORT INFORMATION
  Report Type: 
  Country: None (occurrence: None)
  Receive Date: 20110329
  Receipt Date: 20110321
  Transmission Date: 20110831
  Serious: Yes (Hospitalization)
  Sender: FDA-Public Use
  Company Number: US-US-EMD SERONO, INC.-7021869

PATIENT
  Sex: Male

DRUGS (4)
  1. UNSPECIFIED CHOLESTEROL MEDICATION [Suspect]
  2. UNSPECIFIED BLOOD PRESSURE MEDICATION [Suspect]
  3. GABAPENTIN [Concomitant]
  4. REBIF [Suspect]
     Indication: PRODUCT USED FOR UNKNOWN INDICATION
     Route: 058
     Dates: start: 20100723

REACTIONS (4)
  - MUSCULAR WEAKNESS [None]
  - ABDOMINAL PAIN UPPER [None]
  - MUSCLE SPASMS [None]
  - HYPERTENSION [None]
